FAERS Safety Report 18923378 (Version 5)
Quarter: 2021Q1

REPORT INFORMATION
  Report Type: Report from Study
  Country: FR (occurrence: FR)
  Receive Date: 20210222
  Receipt Date: 20210330
  Transmission Date: 20210420
  Serious: Yes (Hospitalization)
  Sender: FDA-Public Use
  Company Number: FR-ROCHE-2734552

PATIENT
  Age: 35 Year
  Sex: Female
  Weight: 62 kg

DRUGS (73)
  1. OCRELIZUMAB. [Suspect]
     Active Substance: OCRELIZUMAB
     Indication: RELAPSING-REMITTING MULTIPLE SCLEROSIS
     Dosage: DATE OF MOST RECENT DOSE OF OCRELIZUMAB PRIOR TO THIS EVENT ONSET WAS 25/NOV/2020?OCRELIZUMAB WILL B
     Route: 042
     Dates: start: 20180124
  2. LAMISIL [Concomitant]
     Active Substance: TERBINAFINE HYDROCHLORIDE
     Indication: VULVOVAGINAL ERYTHEMA
     Dates: start: 20191104, end: 20191111
  3. LAROXYL [Concomitant]
     Active Substance: AMITRIPTYLINE HYDROCHLORIDE
     Indication: DEPRESSION
     Route: 048
     Dates: start: 20191207, end: 20191217
  4. LEELOO [Concomitant]
     Active Substance: ETHINYL ESTRADIOL\LEVONORGESTREL
     Indication: CONTRACEPTION
     Route: 048
     Dates: end: 20200603
  5. POLYGINAX [Concomitant]
     Dosage: 1 OTHER
     Dates: start: 20190527, end: 20190602
  6. SECNOL [Concomitant]
     Active Substance: SECNIDAZOLE
     Indication: VAGINAL DISCHARGE
     Route: 048
     Dates: start: 20190506, end: 20190530
  7. TOVIAZ [Concomitant]
     Active Substance: FESOTERODINE FUMARATE
     Indication: MULTIPLE SCLEROSIS RELAPSE
     Route: 048
     Dates: start: 20200320, end: 20200325
  8. TRAMADOL. [Concomitant]
     Active Substance: TRAMADOL
     Indication: DEPRESSION
     Route: 048
     Dates: start: 20201024
  9. TRAMADOL. [Concomitant]
     Active Substance: TRAMADOL
     Route: 048
     Dates: start: 20201024
  10. GYNOPHILUS [Concomitant]
     Active Substance: LACTOBACILLUS RHAMNOSUS
     Indication: VAGINAL DISCHARGE
     Dates: start: 20190613, end: 20190613
  11. LAROXYL [Concomitant]
     Active Substance: AMITRIPTYLINE HYDROCHLORIDE
     Route: 048
     Dates: start: 20200108, end: 20200118
  12. LAROXYL [Concomitant]
     Active Substance: AMITRIPTYLINE HYDROCHLORIDE
     Route: 048
     Dates: start: 20200601, end: 20201023
  13. INFLUENZA VACCINE [Concomitant]
     Active Substance: INFLUENZA VIRUS VACCINE
     Indication: INFLAMMATION
     Route: 048
     Dates: start: 20181120, end: 20181120
  14. TOBRADEX [Concomitant]
     Active Substance: DEXAMETHASONE\TOBRAMYCIN
     Indication: DRY EYE
     Route: 047
     Dates: end: 20190831
  15. PARACETAMOL [Concomitant]
     Active Substance: ACETAMINOPHEN
     Indication: VULVOVAGINAL PAIN
     Route: 048
     Dates: start: 20200205, end: 20200220
  16. KETOPROFENE [Concomitant]
     Active Substance: KETOPROFEN
     Indication: TORTICOLLIS
     Route: 048
     Dates: start: 20180227, end: 20180303
  17. AVAMYS [Concomitant]
     Active Substance: FLUTICASONE FUROATE
     Route: 055
     Dates: start: 20200603
  18. LAROXYL [Concomitant]
     Active Substance: AMITRIPTYLINE HYDROCHLORIDE
     Route: 048
     Dates: start: 20191229, end: 20200107
  19. LAROXYL [Concomitant]
     Active Substance: AMITRIPTYLINE HYDROCHLORIDE
     Route: 048
     Dates: start: 20200130, end: 20200205
  20. LAROXYL [Concomitant]
     Active Substance: AMITRIPTYLINE HYDROCHLORIDE
     Route: 048
     Dates: start: 20201024, end: 20201227
  21. PARACETAMOL ACTAVIS [Concomitant]
     Active Substance: ACETAMINOPHEN
     Indication: VULVOVAGINAL PAIN
     Route: 048
     Dates: start: 20200123, end: 20200213
  22. PARACETAMOL ACTAVIS [Concomitant]
     Active Substance: ACETAMINOPHEN
     Indication: INFLAMMATION
  23. PNEUMOVAX 23 [Concomitant]
     Active Substance: PNEUMOCOCCAL VACCINE, POLYVALENT 23
     Route: 030
     Dates: start: 20180607, end: 20180607
  24. PREDNISOLONE. [Concomitant]
     Active Substance: PREDNISOLONE
     Route: 048
     Dates: start: 20180905, end: 20180907
  25. POLARAMINE [Concomitant]
     Active Substance: DEXCHLORPHENIRAMINE MALEATE
     Indication: PREMEDICATION
     Dosage: THERAPY DATES: 07/FEB/2018, 11/JUL/2018, 19/DEC/2018, 19/JUN/2019, 03/JUN/2020 AND 25/NOV/2020.
     Route: 048
     Dates: start: 20180124
  26. DOLIPRANE [Concomitant]
     Active Substance: ACETAMINOPHEN
     Route: 048
     Dates: start: 20201118
  27. ZOPICLONE [Concomitant]
     Active Substance: ZOPICLONE
     Indication: DEPRESSION
     Route: 048
     Dates: start: 20201118, end: 20201218
  28. CONTALAX [Concomitant]
     Active Substance: BISACODYL
     Indication: MULTIPLE SCLEROSIS
     Route: 048
     Dates: start: 20201024
  29. FORLAX [Concomitant]
     Active Substance: POLYETHYLENE GLYCOL 4000
     Route: 048
     Dates: start: 20201221, end: 20210106
  30. PARACETAMOL [Concomitant]
     Active Substance: ACETAMINOPHEN
     Route: 048
     Dates: start: 20200123, end: 20200123
  31. XYZALL [Concomitant]
     Active Substance: LEVOCETIRIZINE DIHYDROCHLORIDE
     Indication: PROPHYLAXIS
     Route: 048
     Dates: start: 20210302
  32. METHYLPREDNISOLONE. [Suspect]
     Active Substance: METHYLPREDNISOLONE
     Indication: PREMEDICATION
     Dosage: THERAPY DATES: 07/FEB/2018, 11/JUL/2018, 19/DEC/2018, 19/JUN/2019, 06/DEC/2019, 03/JUN/2020, 25/NOV/
     Route: 042
     Dates: start: 20180124
  33. LAROXYL [Concomitant]
     Active Substance: AMITRIPTYLINE HYDROCHLORIDE
     Route: 048
     Dates: start: 20200119, end: 20200129
  34. LAROXYL [Concomitant]
     Active Substance: AMITRIPTYLINE HYDROCHLORIDE
     Route: 048
     Dates: start: 20200206, end: 20200531
  35. MAXILASE [Concomitant]
     Active Substance: PANCRELIPASE
     Indication: NASOPHARYNGITIS
     Route: 048
     Dates: start: 20180224, end: 20180225
  36. PREDNISOLONE. [Concomitant]
     Active Substance: PREDNISOLONE
     Indication: BRONCHITIS
     Route: 048
     Dates: start: 20180302, end: 20180305
  37. PREDNISOLONE. [Concomitant]
     Active Substance: PREDNISOLONE
     Route: 048
     Dates: start: 20201024, end: 20210107
  38. PROFENID [Concomitant]
     Active Substance: KETOPROFEN
     Indication: INFLAMMATION
     Route: 048
     Dates: start: 20200123, end: 20200213
  39. DOLIPRANE [Concomitant]
     Active Substance: ACETAMINOPHEN
     Indication: HEADACHE
     Route: 048
     Dates: start: 20180611, end: 20180613
  40. DOLIPRANE [Concomitant]
     Active Substance: ACETAMINOPHEN
     Route: 048
     Dates: start: 20190429, end: 20190505
  41. DULOXETINE. [Concomitant]
     Active Substance: DULOXETINE
     Indication: DEPRESSION
     Route: 048
     Dates: start: 20201228
  42. LANSOYL [Concomitant]
     Active Substance: MINERAL OIL
     Dosage: 1 UNIT
     Route: 048
     Dates: start: 20210107
  43. EFFERALGAN [Concomitant]
     Active Substance: ACETAMINOPHEN
     Indication: BRONCHITIS
     Route: 048
     Dates: start: 20180826, end: 20180909
  44. KESTIN [Concomitant]
     Active Substance: EBASTINE
     Route: 045
     Dates: end: 20180831
  45. KESTIN [Concomitant]
     Active Substance: EBASTINE
     Route: 045
     Dates: start: 20200603
  46. PREDNISOLONE. [Concomitant]
     Active Substance: PREDNISOLONE
     Indication: INFLAMMATION
     Route: 048
     Dates: start: 20200130, end: 20200228
  47. SOLUPRED (FRANCE) [Concomitant]
     Active Substance: PREDNISOLONE SODIUM METAZOATE
     Indication: BRONCHITIS
     Route: 048
     Dates: start: 20190426, end: 20190502
  48. SPASFON (FRANCE) [Concomitant]
     Active Substance: PHLOROGLUCINOL\1,3,5-TRIMETHOXYBENZENE
     Indication: VULVOVAGINAL PAIN
     Route: 048
     Dates: start: 20200205, end: 20200220
  49. DOLIPRANE [Concomitant]
     Active Substance: ACETAMINOPHEN
     Indication: PREMEDICATION
     Dosage: THERAPY DATES: 07/FEB/2018, 11/JUL/2018, 19/DEC/2018, 19/JUN/2019, 06/DEC/2019, 03/JUN/2020 AND 25/N
     Route: 048
     Dates: start: 20180124
  50. KETOPROFENE [Concomitant]
     Active Substance: KETOPROFEN
     Indication: VULVOVAGINAL PAIN
     Route: 048
     Dates: start: 20200205, end: 20200210
  51. BILASKA [Concomitant]
     Active Substance: BILASTINE
     Route: 048
     Dates: start: 20190421, end: 20200603
  52. PREDNISOLONE. [Concomitant]
     Active Substance: PREDNISOLONE
     Indication: DEPRESSION
     Route: 048
     Dates: start: 20180905, end: 20180907
  53. CETIRIZINE [Concomitant]
     Active Substance: CETIRIZINE HYDROCHLORIDE
     Indication: PREMEDICATION
     Dosage: THERAPY DATES: 07/FEB/2018, 11/JUL/2018, 19/DEC/2018, 19/JUN/2019, 06/DEC/2019, 03/JUN/2020 AND 25/N
     Route: 048
     Dates: start: 20180124
  54. OMEPRAZOLE. [Concomitant]
     Active Substance: OMEPRAZOLE
     Route: 048
     Dates: start: 20201120
  55. BILASKA [Concomitant]
     Active Substance: BILASTINE
     Route: 048
     Dates: start: 20201024
  56. ESOMEPRAZOLE. [Concomitant]
     Active Substance: ESOMEPRAZOLE MAGNESIUM
     Route: 048
     Dates: start: 20200204, end: 20200209
  57. FLU VACCINE [Concomitant]
     Active Substance: INFLUENZA VIRUS VACCINE
     Route: 030
  58. LAROXYL [Concomitant]
     Active Substance: AMITRIPTYLINE HYDROCHLORIDE
     Route: 048
     Dates: start: 20201228
  59. MONAZOL [Concomitant]
     Active Substance: SERTACONAZOLE NITRATE
     Indication: VAGINAL DISCHARGE
     Route: 048
     Dates: start: 20190516, end: 20190516
  60. PREDNISOLONE. [Concomitant]
     Active Substance: PREDNISOLONE
     Route: 048
     Dates: start: 20200301, end: 20200601
  61. TRAMADOL. [Concomitant]
     Active Substance: TRAMADOL
     Indication: INFLAMMATION
     Route: 048
     Dates: start: 20200123, end: 20200213
  62. DOLIPRANE [Concomitant]
     Active Substance: ACETAMINOPHEN
     Indication: INFUSION RELATED REACTION
     Route: 048
     Dates: start: 20181228, end: 20181229
  63. FORLAX [Concomitant]
     Active Substance: POLYETHYLENE GLYCOL 4000
     Route: 048
     Dates: start: 20210107
  64. AVAMYS [Concomitant]
     Active Substance: FLUTICASONE FUROATE
     Route: 045
     Dates: end: 20180331
  65. AVAMYS [Concomitant]
     Active Substance: FLUTICASONE FUROATE
     Route: 055
  66. BILASKA [Concomitant]
     Active Substance: BILASTINE
     Route: 048
     Dates: start: 20180901, end: 20181201
  67. LAROXYL [Concomitant]
     Active Substance: AMITRIPTYLINE HYDROCHLORIDE
     Route: 048
     Dates: start: 20191218, end: 20191228
  68. LEVOTHYROX [Concomitant]
     Active Substance: LEVOTHYROXINE
     Route: 048
     Dates: start: 20181108
  69. LEVOTHYROX [Concomitant]
     Active Substance: LEVOTHYROXINE
     Route: 048
     Dates: end: 20181107
  70. MOVICOL [Concomitant]
     Active Substance: POLYETHYLENE GLYCOL 3350\POTASSIUM CHLORIDE\SODIUM BICARBONATE\SODIUM CHLORIDE
     Indication: CONSTIPATION
     Route: 048
  71. POLYGINAX [Concomitant]
     Indication: VAGINAL DISCHARGE
     Dosage: 1 OTHER
     Route: 030
     Dates: start: 20180607, end: 20180607
  72. SERESTA [Concomitant]
     Active Substance: OXAZEPAM
     Indication: DEPRESSION
     Route: 048
     Dates: start: 20201024
  73. KETOPROFENE [Concomitant]
     Active Substance: KETOPROFEN
     Route: 048
     Dates: start: 20201120

REACTIONS (1)
  - Vaginal infection [Recovered/Resolved]

NARRATIVE: CASE EVENT DATE: 20201212
